FAERS Safety Report 17748504 (Version 7)
Quarter: 2020Q3

REPORT INFORMATION
  Report Type: Report from Study
  Country: US (occurrence: US)
  Receive Date: 20200505
  Receipt Date: 20200710
  Transmission Date: 20201102
  Serious: Yes (Death, Hospitalization)
  Sender: FDA-Public Use
  Company Number: US-ACTELION-A-NJ2019-187243

PATIENT
  Age: 60 Year
  Sex: Female
  Weight: 58.05 kg

DRUGS (7)
  1. XARELTO [Concomitant]
     Active Substance: RIVAROXABAN
  2. VELETRI [Suspect]
     Active Substance: EPOPROSTENOL
     Dosage: 38 NG/KG, PER MIN
     Route: 042
  3. VELETRI [Suspect]
     Active Substance: EPOPROSTENOL
     Dosage: 65 NG/KG, PER MIN
     Route: 042
  4. DILTIAZEM. [Concomitant]
     Active Substance: DILTIAZEM
  5. VELETRI [Suspect]
     Active Substance: EPOPROSTENOL
     Dosage: 38.5 NG
     Route: 042
  6. VELETRI [Suspect]
     Active Substance: EPOPROSTENOL
     Indication: PULMONARY HYPERTENSION
     Dosage: 47 NG/KG, PER MIN
     Route: 042
  7. VELETRI [Suspect]
     Active Substance: EPOPROSTENOL
     Dosage: 37.5 NG/KG, PER MIN
     Route: 042

REACTIONS (22)
  - Pulmonary hypertension [Unknown]
  - Death [Fatal]
  - Drug delivery device placement [Recovering/Resolving]
  - Dyspnoea [Unknown]
  - Heart rate irregular [Unknown]
  - Pulmonary artery occlusion [Unknown]
  - Unevaluable event [Unknown]
  - Pulmonary arteriopathy [Unknown]
  - Device issue [Recovering/Resolving]
  - Feeling abnormal [Recovering/Resolving]
  - Diarrhoea [Recovering/Resolving]
  - Orthopnoea [Unknown]
  - Pulmonary pain [Unknown]
  - Chest pain [Unknown]
  - Pain [Recovering/Resolving]
  - Dyspnoea exertional [Unknown]
  - Coronary artery occlusion [Unknown]
  - Abdominal pain upper [Unknown]
  - Vascular device infection [Unknown]
  - Hypoxia [Unknown]
  - Lung disorder [Recovering/Resolving]
  - Fatigue [Unknown]

NARRATIVE: CASE EVENT DATE: 20200628
